FAERS Safety Report 5297569-4 (Version None)
Quarter: 2007Q2

REPORT INFORMATION
  Report Type: 
  Country: None (occurrence: None)
  Receive Date: 20070416
  Receipt Date: 20070402
  Transmission Date: 20071010
  Serious: Yes (Other)
  Sender: FDA-Public Use
  Company Number: PHEH2007US03944

PATIENT
  Sex: Female

DRUGS (6)
  1. ZELNORM [Suspect]
     Indication: CONSTIPATION
     Dosage: 6 MG, QD
     Dates: start: 20030501, end: 20070329
  2. SYNTHROID [Concomitant]
  3. ESTRADIOL [Concomitant]
  4. COMPAZINE [Concomitant]
  5. CRESTOR [Concomitant]
  6. TOPROL-XL [Concomitant]

REACTIONS (6)
  - ABDOMINAL PAIN [None]
  - CHEST PAIN [None]
  - DIARRHOEA [None]
  - MUCOUS STOOLS [None]
  - RECTAL HAEMORRHAGE [None]
  - STRESS [None]
